FAERS Safety Report 10542186 (Version 2)
Quarter: 2014Q4

REPORT INFORMATION
  Report Type: Spontaneous
  Country: US (occurrence: None)
  Receive Date: 20141010
  Receipt Date: 20141205
  Transmission Date: 20150529
  Serious: No
  Sender: FDA-Public Use
  Company Number: 163-POMAL-14064190

PATIENT
  Age: 74 Year
  Sex: Male

DRUGS (10)
  1. SENNA(SENNA)(TABLETS) [Concomitant]
  2. CARVEDILOL(CARVEDILOL)(TABLETS) [Concomitant]
  3. BACTRIM DS(BACTRIM)(TABLETS) [Concomitant]
  4. TRACLEER(BOSENTAN)(TABLETS) [Concomitant]
  5. OXYCONTIN(OXYCODONE HYDROCODONE)(TABLETS) [Concomitant]
  6. POMALYST [Suspect]
     Active Substance: POMALIDOMIDE
     Indication: PLASMA CELL MYELOMA
     Dosage: 2 MG, 21 IN 28 D, PO
     Route: 048
     Dates: start: 20140529, end: 2014
  7. COLACE(DOCUSATE SODIUM)(CAPSULES) [Concomitant]
  8. MILK MAGNESIA(MAGNESIUM HYDROXIDE) [Concomitant]
  9. TORESEMIDE(TORASEMIDE)(TABLETS) [Concomitant]
  10. DEXAMETHASONE(DEXAMETHASONE)(TABLETS) [Concomitant]
     Active Substance: DEXAMETHASONE

REACTIONS (12)
  - Neutropenia [None]
  - Diarrhoea [None]
  - Oedema peripheral [None]
  - Vomiting [None]
  - Thrombocytopenia [None]
  - Weight increased [None]
  - Abdominal distension [None]
  - Platelet count decreased [None]
  - Increased tendency to bruise [None]
  - Neuropathy peripheral [None]
  - Flatulence [None]
  - Immunosuppression [None]

NARRATIVE: CASE EVENT DATE: 2014
